FAERS Safety Report 21094798 (Version 1)
Quarter: 2022Q3

REPORT INFORMATION
  Report Type: Spontaneous
  Country: GB (occurrence: GB)
  Receive Date: 20220718
  Receipt Date: 20220718
  Transmission Date: 20221027
  Serious: No
  Sender: FDA-Public Use
  Company Number: GB-GSKCCFEMEA-Case-01534301_AE-60194

PATIENT

DRUGS (2)
  1. SOTROVIMAB [Suspect]
     Active Substance: SOTROVIMAB
     Indication: Product used for unknown indication
     Dosage: UNK
     Dates: start: 202201
  2. SOTROVIMAB [Suspect]
     Active Substance: SOTROVIMAB
     Dosage: UNK
     Dates: start: 202203

REACTIONS (1)
  - COVID-19 [Unknown]
